FAERS Safety Report 9630297 (Version 2)
Quarter: 2013Q4

REPORT INFORMATION
  Report Type: Spontaneous
  Country: US (occurrence: US)
  Receive Date: 20131017
  Receipt Date: 20131203
  Transmission Date: 20140711
  Serious: Yes (Other)
  Sender: FDA-Public Use
  Company Number: US-AMGEN-USASP2013072975

PATIENT
  Age: 72 Year
  Sex: Male
  Weight: 90.7 kg

DRUGS (6)
  1. ENBREL [Suspect]
     Indication: PSORIASIS
     Dosage: UNK
     Route: 065
     Dates: start: 200601, end: 20130301
  2. OMEPRAZOLE [Concomitant]
     Dosage: UNK
  3. ATENOLOL [Concomitant]
     Dosage: UNK
  4. LIPITOR [Concomitant]
     Dosage: UNK
  5. HYDROCHLOROTHIAZIDE [Concomitant]
     Dosage: UNK
  6. DOXAZOSIN [Concomitant]
     Dosage: UNK

REACTIONS (2)
  - Prostate cancer [Unknown]
  - Herpes zoster [Unknown]
